FAERS Safety Report 4889869-4 (Version None)
Quarter: 2006Q1

REPORT INFORMATION
  Report Type: 
  Country: None (occurrence: None)
  Receive Date: 20060124
  Receipt Date: 20050818
  Transmission Date: 20060701
  Serious: Yes (Hospitalization, Other)
  Sender: FDA-Public Use
  Company Number: US-MERCK-0508USA03486

PATIENT
  Age: 66 Year
  Sex: Female
  Weight: 80 kg

DRUGS (7)
  1. VIOXX [Suspect]
     Indication: OSTEOARTHRITIS
     Route: 048
     Dates: start: 20000417, end: 20020529
  2. PREMARIN [Concomitant]
     Route: 065
  3. VITAMIN E [Concomitant]
     Route: 065
  4. ZOCOR [Concomitant]
     Route: 048
  5. PAXIL [Concomitant]
     Route: 065
  6. CLARITIN [Concomitant]
     Route: 065
  7. PROTONIX [Concomitant]
     Route: 065

REACTIONS (20)
  - ABDOMINAL PAIN LOWER [None]
  - ACCELERATED HYPERTENSION [None]
  - BRONCHITIS [None]
  - CEREBROVASCULAR ACCIDENT [None]
  - CHEST PAIN [None]
  - DEHYDRATION [None]
  - DIARRHOEA [None]
  - ESSENTIAL HYPERTENSION [None]
  - EYELID PTOSIS [None]
  - HAEMOPTYSIS [None]
  - HYPERTENSION [None]
  - LIPOMA [None]
  - LOBAR PNEUMONIA [None]
  - LORDOSIS [None]
  - OSTEOARTHRITIS [None]
  - SEBORRHOEIC KERATOSIS [None]
  - SHOULDER PAIN [None]
  - SINUS BRADYCARDIA [None]
  - TRANSIENT ISCHAEMIC ATTACK [None]
  - VISUAL ACUITY REDUCED [None]
